FAERS Safety Report 6834026-5 (Version None)
Quarter: 2010Q3

REPORT INFORMATION
  Report Type: 
  Country: None (occurrence: None)
  Receive Date: 20100712
  Receipt Date: 20070410
  Transmission Date: 20110219
  Serious: No
  Sender: FDA-Public Use
  Company Number: US-PFIZER INC-2007029135

PATIENT
  Age: 54 Year
  Sex: Female
  Weight: 66.68 kg

DRUGS (5)
  1. CHANTIX [Suspect]
     Indication: SMOKING CESSATION THERAPY
     Dates: start: 20070404
  2. ALBUTEROL [Concomitant]
     Indication: ASTHMA
     Route: 055
  3. BUSPAR [Concomitant]
  4. ZOLOFT [Concomitant]
  5. CHOLESTEROL [Concomitant]
     Indication: BLOOD CHOLESTEROL ABNORMAL

REACTIONS (2)
  - ANXIETY [None]
  - SLEEP DISORDER [None]
